FAERS Safety Report 16863183 (Version 8)
Quarter: 2025Q3

REPORT INFORMATION
  Report Type: Spontaneous
  Country: GB (occurrence: GB)
  Receive Date: 20190927
  Receipt Date: 20250710
  Transmission Date: 20251020
  Serious: Yes (Death, Hospitalization, Other)
  Sender: AUROBINDO
  Company Number: None

PATIENT
  Age: 75 Year
  Sex: Female

DRUGS (29)
  1. ATORVASTATIN [Suspect]
     Active Substance: ATORVASTATIN
     Indication: Hypercholesterolaemia
     Route: 065
     Dates: start: 1999
  2. ATORVASTATIN [Suspect]
     Active Substance: ATORVASTATIN
     Route: 065
     Dates: start: 19990101, end: 200203
  3. LISINOPRIL [Suspect]
     Active Substance: LISINOPRIL
     Indication: Hypertension
     Route: 048
     Dates: start: 200203
  4. LISINOPRIL [Suspect]
     Active Substance: LISINOPRIL
     Route: 048
     Dates: start: 20020301, end: 200203
  5. ARAVA [Suspect]
     Active Substance: LEFLUNOMIDE
     Indication: Rheumatoid arthritis
     Dosage: 20 MILLIGRAM, ONCE A DAY
     Route: 048
     Dates: start: 200101, end: 2002
  6. ARAVA [Suspect]
     Active Substance: LEFLUNOMIDE
     Dosage: 20 MILLIGRAM, ONCE A DAY
     Route: 048
     Dates: start: 200203, end: 200203
  7. ASPIRIN [Suspect]
     Active Substance: ASPIRIN
     Indication: Angina pectoris
     Route: 065
     Dates: start: 200203
  8. ASPIRIN [Suspect]
     Active Substance: ASPIRIN
     Indication: Pain
     Route: 065
     Dates: start: 20020301, end: 2002
  9. BUDESONIDE [Suspect]
     Active Substance: BUDESONIDE
     Indication: Asthma
     Route: 055
     Dates: start: 20020301, end: 2002
  10. BUDESONIDE [Suspect]
     Active Substance: BUDESONIDE
     Route: 055
     Dates: start: 201903
  11. BUDESONIDE [Suspect]
     Active Substance: BUDESONIDE
     Route: 065
  12. COCODAMOL [Suspect]
     Active Substance: ACETAMINOPHEN\CODEINE PHOSPHATE
     Indication: Rheumatoid arthritis
     Route: 065
     Dates: start: 20020301, end: 2002
  13. COCODAMOL [Suspect]
     Active Substance: ACETAMINOPHEN\CODEINE PHOSPHATE
     Route: 065
     Dates: start: 200203
  14. NITROGLYCERIN [Suspect]
     Active Substance: NITROGLYCERIN
     Indication: Angina pectoris
     Route: 048
     Dates: start: 200203, end: 200203
  15. NITROGLYCERIN [Suspect]
     Active Substance: NITROGLYCERIN
     Indication: Pain
     Route: 048
     Dates: start: 20020301, end: 200203
  16. DILTIAZEM HYDROCHLORIDE [Suspect]
     Active Substance: DILTIAZEM HYDROCHLORIDE
     Indication: Hypertension
     Route: 065
     Dates: start: 200203
  17. DILTIAZEM HYDROCHLORIDE [Suspect]
     Active Substance: DILTIAZEM HYDROCHLORIDE
     Route: 065
     Dates: start: 20020301, end: 200203
  18. FENTANYL [Suspect]
     Active Substance: FENTANYL
     Indication: Induction of anaesthesia
     Route: 042
     Dates: start: 200203, end: 200203
  19. FENTANYL [Suspect]
     Active Substance: FENTANYL
     Indication: Anaesthesia
     Route: 042
     Dates: start: 20020301, end: 20020301
  20. LANSOPRAZOLE [Suspect]
     Active Substance: LANSOPRAZOLE
     Indication: Duodenal ulcer
     Route: 065
     Dates: start: 200203
  21. LANSOPRAZOLE [Suspect]
     Active Substance: LANSOPRAZOLE
     Route: 065
     Dates: start: 20020301, end: 2002
  22. MIDAZOLAM [Suspect]
     Active Substance: MIDAZOLAM
     Indication: Induction of anaesthesia
     Route: 042
     Dates: start: 20020301, end: 20020301
  23. MIDAZOLAM [Suspect]
     Active Substance: MIDAZOLAM
     Indication: Anaesthesia
     Route: 042
     Dates: start: 200203, end: 200203
  24. PANCURONIUM [Suspect]
     Active Substance: PANCURONIUM
     Indication: Muscle spasms
     Route: 065
     Dates: start: 200203, end: 200203
  25. PANCURONIUM [Suspect]
     Active Substance: PANCURONIUM
     Indication: Muscle relaxant therapy
     Route: 065
     Dates: start: 20020301, end: 20020301
  26. PROPOFOL [Suspect]
     Active Substance: PROPOFOL
     Indication: Induction of anaesthesia
     Route: 042
     Dates: start: 200203, end: 200203
  27. PROPOFOL [Suspect]
     Active Substance: PROPOFOL
     Indication: Anaesthesia
     Route: 042
     Dates: start: 20020301, end: 20020301
  28. QUININE SULFATE [Suspect]
     Active Substance: QUININE SULFATE
     Indication: Muscle spasms
     Route: 065
     Dates: end: 2002
  29. FLUTICASONE PROPIONATE [Concomitant]
     Active Substance: FLUTICASONE PROPIONATE
     Indication: Product used for unknown indication
     Dosage: 1 MICROGRAM, TWO TIMES A DAY
     Route: 045

REACTIONS (15)
  - Renal failure [Fatal]
  - Haematemesis [Fatal]
  - Labile blood pressure [Fatal]
  - Myocardial ischaemia [Fatal]
  - Diverticulitis [Fatal]
  - Gastrointestinal haemorrhage [Fatal]
  - Acute hepatic failure [Fatal]
  - Intestinal ischaemia [Fatal]
  - Multiple organ dysfunction syndrome [Fatal]
  - Hepatic failure [Fatal]
  - Coronary artery disease [Unknown]
  - Abdominal rigidity [Unknown]
  - Abdominal pain upper [Unknown]
  - Coagulopathy [Unknown]
  - Duodenal ulcer [Not Recovered/Not Resolved]

NARRATIVE: CASE EVENT DATE: 20020101
